FAERS Safety Report 20691084 (Version 2)
Quarter: 2022Q4

REPORT INFORMATION
  Report Type: Spontaneous
  Country: IT (occurrence: IT)
  Receive Date: 20220408
  Receipt Date: 20221208
  Transmission Date: 20230113
  Serious: Yes (Hospitalization, Other)
  Sender: FDA-Public Use
  Company Number: IT-PFIZER INC-202200349521

PATIENT
  Age: 18 Year
  Sex: Male

DRUGS (22)
  1. METHOTREXATE [Suspect]
     Active Substance: METHOTREXATE
     Indication: Primary mediastinal large B-cell lymphoma
     Dosage: UNK
     Route: 065
  2. METHOTREXATE [Suspect]
     Active Substance: METHOTREXATE
     Indication: Central nervous system lymphoma
     Dosage: UNK(CYCLICAL,RECEIVED 2 CYCLE)
     Route: 065
  3. RITUXIMAB [Suspect]
     Active Substance: RITUXIMAB
     Indication: Lymphoma
     Dosage: UNK
     Route: 065
  4. RITUXIMAB [Suspect]
     Active Substance: RITUXIMAB
     Indication: Primary mediastinal large B-cell lymphoma
     Dosage: UNK CYCLICAL (RECEIVED 2 CYCLES; PART OF R-ICE REGIMEN)
     Route: 065
  5. RITUXIMAB [Suspect]
     Active Substance: RITUXIMAB
     Indication: Central nervous system lymphoma
  6. THIOTEPA [Suspect]
     Active Substance: THIOTEPA
     Indication: Primary mediastinal large B-cell lymphoma
     Dosage: UNK
     Route: 065
  7. THIOTEPA [Suspect]
     Active Substance: THIOTEPA
     Indication: Central nervous system lymphoma
     Dosage: UNK CYCLICAL (RECEIVED 2 CYCLES)
     Route: 065
  8. CYTARABINE [Suspect]
     Active Substance: CYTARABINE
     Indication: Lymphoma
     Dosage: UNK UNK, CYCLE (UNK, CYCLIC)
     Route: 065
  9. CYTARABINE [Suspect]
     Active Substance: CYTARABINE
     Indication: Primary mediastinal large B-cell lymphoma
     Dosage: UNK CYCLICAL (RECEIVED 2 CYCLES)
     Route: 065
  10. CYTARABINE [Suspect]
     Active Substance: CYTARABINE
     Indication: Central nervous system lymphoma
  11. CARBOPLATIN [Suspect]
     Active Substance: CARBOPLATIN
     Indication: Lymphoma
     Dosage: UNK UNK, CYCLE (UNK, CYCLIC)
     Route: 065
  12. CARBOPLATIN [Suspect]
     Active Substance: CARBOPLATIN
     Indication: Primary mediastinal large B-cell lymphoma
     Dosage: UNK CYCLICAL (PART OF R-ICE REGIMEN)
     Route: 065
  13. CARBOPLATIN [Suspect]
     Active Substance: CARBOPLATIN
     Indication: Central nervous system lymphoma
  14. ETOPOSIDE [Suspect]
     Active Substance: ETOPOSIDE
     Indication: Lymphoma
     Dosage: UNK, CYCLE
     Route: 065
  15. ETOPOSIDE [Suspect]
     Active Substance: ETOPOSIDE
     Indication: Primary mediastinal large B-cell lymphoma
     Dosage: UNK CYCLICAL (PART OF R-ICE REGIMEN)
     Route: 065
  16. ETOPOSIDE [Suspect]
     Active Substance: ETOPOSIDE
     Indication: Central nervous system lymphoma
  17. IFOSFAMIDE [Suspect]
     Active Substance: IFOSFAMIDE
     Indication: Primary mediastinal large B-cell lymphoma
     Dosage: UNK
     Route: 065
  18. IFOSFAMIDE [Suspect]
     Active Substance: IFOSFAMIDE
     Indication: Central nervous system lymphoma
     Dosage: UNKCYCLICAL (PART OF R-ICE REGIMEN)
     Route: 065
  19. IBRUTINIB [Suspect]
     Active Substance: IBRUTINIB
     Indication: Primary mediastinal large B-cell lymphoma
     Dosage: 560 MILLIGRAM, QD
     Route: 065
     Dates: end: 201907
  20. IBRUTINIB [Suspect]
     Active Substance: IBRUTINIB
     Indication: Central nervous system lymphoma
  21. BUSULFAN [Suspect]
     Active Substance: BUSULFAN
     Indication: Primary mediastinal large B-cell lymphoma
     Dosage: UNK (CYCLICAL)
     Route: 065
  22. BUSULFAN [Suspect]
     Active Substance: BUSULFAN
     Indication: Central nervous system lymphoma

REACTIONS (5)
  - Drug ineffective [Unknown]
  - Drug resistance [Unknown]
  - Seizure [Unknown]
  - Pneumonia [Unknown]
  - Off label use [Unknown]
